FAERS Safety Report 25550754 (Version 1)
Quarter: 2025Q3

REPORT INFORMATION
  Report Type: Report from Study
  Country: IN (occurrence: IN)
  Receive Date: 20250714
  Receipt Date: 20250714
  Transmission Date: 20251021
  Serious: Yes (Other)
  Sender: DAIICHI
  Company Number: IN-AstraZeneca-CH-00904569A

PATIENT
  Age: 56 Year
  Sex: Male
  Weight: 82 kg

DRUGS (1)
  1. ENHERTU [Suspect]
     Active Substance: FAM-TRASTUZUMAB DERUXTECAN-NXKI
     Indication: Product used for unknown indication
     Dosage: 300 MG, ONCE EVERY 3 WK
     Route: 040
     Dates: start: 202409

REACTIONS (6)
  - Neuropathy peripheral [Unknown]
  - Asthenia [Unknown]
  - Muscle atrophy [Unknown]
  - Weight decreased [Unknown]
  - Dyspnoea [Unknown]
  - Feeding disorder [Unknown]
